FAERS Safety Report 10558666 (Version 2)
Quarter: 2014Q4

REPORT INFORMATION
  Report Type: Report from Study
  Country: BR (occurrence: BR)
  Receive Date: 20141031
  Receipt Date: 20141115
  Transmission Date: 20150529
  Serious: Yes (Other)
  Sender: FDA-Public Use
  Company Number: PHHY2014BR142517

PATIENT
  Sex: Female
  Weight: 54 kg

DRUGS (4)
  1. VITAMIN D [Concomitant]
     Active Substance: CHOLECALCIFEROL
     Indication: PRODUCT USED FOR UNKNOWN INDICATION
     Dosage: 1 DF, QD
     Route: 048
  2. DIOVAN [Suspect]
     Active Substance: VALSARTAN
     Indication: HYPERTENSION
     Dosage: 1 DF (80MG), BID (MORNING AND NIGHT)
     Route: 048
  3. CENTRUM [Concomitant]
     Active Substance: VITAMINS
     Indication: VITAMIN SUPPLEMENTATION
     Dosage: 1 DF, QD
     Route: 048
     Dates: start: 1982
  4. DIOVAN [Suspect]
     Active Substance: VALSARTAN
     Dosage: 1.5 DF (160MG), QD (1 TABLET IN THE MORNING AND HALF AT NIGHT)
     Route: 048

REACTIONS (18)
  - Vulvovaginal pruritus [Recovered/Resolved]
  - Wrong technique in drug usage process [Recovered/Resolved]
  - Hypersensitivity [Recovered/Resolved]
  - Swelling [Recovered/Resolved]
  - Anal inflammation [Recovered/Resolved]
  - Depressed mood [Recovered/Resolved]
  - Blood cholesterol increased [Not Recovered/Not Resolved]
  - Vaginal disorder [Recovered/Resolved]
  - Drug ineffective [Recovered/Resolved]
  - Blood pressure increased [Recovering/Resolving]
  - Abasia [Recovered/Resolved]
  - Visual impairment [Recovering/Resolving]
  - Vision blurred [Recovering/Resolving]
  - Dizziness [Recovered/Resolved]
  - Vulvovaginal burning sensation [Recovered/Resolved]
  - Intraocular pressure increased [Recovered/Resolved]
  - Urinary incontinence [Recovered/Resolved]
  - Vulvovaginal swelling [Recovered/Resolved]
